FAERS Safety Report 5009658-X (Version None)
Quarter: 2006Q2

REPORT INFORMATION
  Report Type: 
  Country: None (occurrence: None)
  Receive Date: 20060524
  Receipt Date: 20060517
  Transmission Date: 20061013
  Serious: Yes (Death)
  Sender: FDA-Public Use
  Company Number: FR-GLAXOSMITHKLINE-B0424578A

PATIENT

DRUGS (2)
  1. ARIXTRA [Suspect]
     Indication: THROMBOSIS
     Dosage: 7.5MG PER DAY
     Route: 058
     Dates: start: 20060101
  2. ANTIVITAMINS K [Suspect]
     Indication: THROMBOSIS
     Dates: start: 20060101

REACTIONS (1)
  - HAEMORRHAGE [None]
